FAERS Safety Report 18414586 (Version 2)
Quarter: 2020Q4

REPORT INFORMATION
  Report Type: Spontaneous
  Country: FR (occurrence: FR)
  Receive Date: 20201022
  Receipt Date: 20201029
  Transmission Date: 20210114
  Serious: Yes (Hospitalization)
  Sender: FDA-Public Use
  Company Number: FR-TEVA-2020-FR-1840119

PATIENT
  Age: 62 Year
  Sex: Male
  Weight: 65 kg

DRUGS (7)
  1. CISPLATINE [Suspect]
     Active Substance: CISPLATIN
     Dosage: 74MG
     Route: 042
     Dates: start: 20200820, end: 20200820
  2. ATORVASTATINE [Concomitant]
     Active Substance: ATORVASTATIN
     Dosage: 80MG
     Route: 048
  3. DOCETAXEL ACCORD 80 MG/4 ML, SOLUTION A DILUER POUR PERFUSION [Suspect]
     Active Substance: DOCETAXEL
     Indication: GLOTTIS CARCINOMA
     Dosage: 74MG?DOCETAXEL ACCORD 80 MG/4 ML, SOLUTION A DILUER POUR PERFUSION
     Route: 042
     Dates: start: 20200820, end: 20200820
  4. FLUOROURACILE ACCORD 50 MG/ML, SOLUTION POUR PERFUSION [Suspect]
     Active Substance: FLUOROURACIL
     Indication: GLOTTIS CARCINOMA
     Dosage: 2590MG
     Route: 041
     Dates: start: 20200820, end: 20200821
  5. BISOPROLOL (FUMARATE ACIDE DE) [Concomitant]
     Active Substance: BISOPROLOL FUMARATE
     Dosage: 3.75MG
     Route: 048
  6. ASPIRINE PROTECT 100 MG, COMPRIME GASTRO-RESISTANT [Concomitant]
     Active Substance: ASPIRIN
     Dosage: 100MG
     Route: 048
  7. LEVOFOLINATE CALCIQUE [Concomitant]
     Active Substance: LEVOLEUCOVORIN CALCIUM
     Dosage: 370MG
     Route: 042
     Dates: start: 20200820, end: 20200820

REACTIONS (1)
  - Colitis [Recovered/Resolved]

NARRATIVE: CASE EVENT DATE: 20200824
